FAERS Safety Report 6398367-0 (Version None)
Quarter: 2009Q4

REPORT INFORMATION
  Report Type: 
  Country: None (occurrence: None)
  Receive Date: 20091013
  Receipt Date: 20091001
  Transmission Date: 20100525
  Serious: Yes (Hospitalization)
  Sender: FDA-Public Use
  Company Number: JP-PFIZER INC-2009269558

PATIENT
  Age: 60 Year

DRUGS (9)
  1. SUNITINIB MALATE [Suspect]
     Indication: HEPATIC NEOPLASM MALIGNANT
     Dosage: 37.5 MG, 1X/DAY
     Route: 048
     Dates: start: 20090413
  2. RENIVACE [Concomitant]
     Indication: HYPERTENSION
     Dosage: UNK
     Route: 048
  3. DILTIAZEM HYDROCHLORIDE [Concomitant]
     Indication: HYPERTENSION
     Dosage: UNK
     Route: 048
  4. URSO 250 [Concomitant]
     Indication: ALCOHOLIC LIVER DISEASE
     Dosage: UNK
     Route: 048
  5. OMEPRAL [Concomitant]
     Indication: GASTRITIS
     Dosage: UNK
     Route: 048
  6. ALBUMIN TANNATE [Concomitant]
     Indication: DIARRHOEA
     Dosage: UNK
     Route: 048
     Dates: start: 20090706
  7. LAC B [Concomitant]
     Indication: DIARRHOEA
     Dosage: UNK
     Route: 048
     Dates: start: 20090525
  8. THYRADIN-S [Concomitant]
     Indication: HYPOTHYROIDISM
     Dosage: UNK
     Route: 048
     Dates: start: 20090911
  9. MYSER [Concomitant]
     Indication: PALMAR-PLANTAR ERYTHRODYSAESTHESIA SYNDROME
     Dosage: UNK
     Dates: start: 20090525

REACTIONS (2)
  - OESOPHAGEAL RUPTURE [None]
  - PNEUMOMEDIASTINUM [None]
